FAERS Safety Report 8418510-9 (Version None)
Quarter: 2012Q2

REPORT INFORMATION
  Report Type: 
  Country: None (occurrence: None)
  Receive Date: 20120607
  Receipt Date: 20120531
  Transmission Date: 20120825
  Serious: Yes (Hospitalization)
  Sender: FDA-Public Use
  Company Number: GB-ASTELLAS-2012EU003932

PATIENT
  Sex: Male

DRUGS (2)
  1. ASPIRIN [Suspect]
     Dosage: UNK
     Route: 065
  2. VESICARE [Suspect]
     Dosage: UNK
     Route: 065

REACTIONS (7)
  - DRY THROAT [None]
  - RECTAL HAEMORRHAGE [None]
  - INTESTINAL RESECTION [None]
  - ENTEROSTOMY [None]
  - WEIGHT DECREASED [None]
  - DRY MOUTH [None]
  - DECREASED APPETITE [None]
